FAERS Safety Report 7435259-X (Version None)
Quarter: 2011Q2

REPORT INFORMATION
  Report Type: 
  Country: None (occurrence: None)
  Receive Date: 20110425
  Receipt Date: 20110211
  Transmission Date: 20111010
  Serious: Yes (Hospitalization, Other)
  Sender: FDA-Public Use
  Company Number: PHEH2009US13681

PATIENT
  Sex: Female
  Weight: 80 kg

DRUGS (5)
  1. EXJADE [Suspect]
     Indication: BLOOD PRODUCT TRANSFUSION DEPENDENT
     Dosage: 1500 MG, QD
     Route: 048
     Dates: start: 19990101, end: 20100219
  2. HYDROXYUREA [Concomitant]
     Dosage: 200 MG DAILY
     Route: 048
     Dates: end: 20100219
  3. ACETAMINOPHEN [Concomitant]
     Dosage: 01-02 TABS EVERY 4-6 HOURS AS NEEDED
     Route: 048
  4. FOLIC ACID [Concomitant]
     Route: 048
  5. EXJADE [Suspect]
     Indication: SICKLE CELL ANAEMIA

REACTIONS (4)
  - NORMAL NEWBORN [None]
  - DRUG EXPOSURE DURING PREGNANCY [None]
  - SICKLE CELL ANAEMIA WITH CRISIS [None]
  - ABNORMAL BEHAVIOUR [None]
